FAERS Safety Report 12334228 (Version 1)
Quarter: 2016Q2

REPORT INFORMATION
  Report Type: Spontaneous
  Country: US (occurrence: US)
  Receive Date: 20160504
  Receipt Date: 20160504
  Transmission Date: 20160815
  Serious: No
  Sender: FDA-Public Use
  Company Number: US-ABBVIE-16P-163-1572458-00

PATIENT
  Age: 59 Year
  Sex: Female

DRUGS (1)
  1. CREON [Suspect]
     Active Substance: PANCRELIPASE AMYLASE\PANCRELIPASE LIPASE\PANCRELIPASE PROTEASE
     Indication: PANCREATITIS CHRONIC
     Route: 048
     Dates: start: 20151231, end: 20160220

REACTIONS (10)
  - Hypotension [Recovered/Resolved]
  - Dysgeusia [Recovering/Resolving]
  - Constipation [Recovering/Resolving]
  - Oropharyngeal spasm [Recovered/Resolved]
  - Chest pain [Recovered/Resolved]
  - Oropharyngeal spasm [Recovered/Resolved]
  - Oropharyngeal pain [Recovering/Resolving]
  - Gastrooesophageal reflux disease [Recovering/Resolving]
  - Dyspnoea [Recovered/Resolved]
  - Chest pain [Recovering/Resolving]

NARRATIVE: CASE EVENT DATE: 20160118
